FAERS Safety Report 7999129-0 (Version None)
Quarter: 2011Q4

REPORT INFORMATION
  Report Type: 
  Country: None (occurrence: None)
  Receive Date: 20111221
  Receipt Date: 20111215
  Transmission Date: 20120403
  Serious: Yes (Death)
  Sender: FDA-Public Use
  Company Number: DE-CELGENEUS-062-21660-11110273

PATIENT

DRUGS (2)
  1. VIDAZA [Suspect]
     Route: 050
  2. ABRAXANE [Suspect]
     Route: 050

REACTIONS (1)
  - DEATH [None]
